FAERS Safety Report 14517707 (Version 1)
Quarter: 2018Q1

REPORT INFORMATION
  Report Type: Spontaneous
  Country: US (occurrence: US)
  Receive Date: 20180209
  Receipt Date: 20180209
  Transmission Date: 20180509
  Serious: No
  Sender: FDA-Public Use
  Company Number: None

PATIENT
  Age: 41 Year
  Sex: Female

DRUGS (1)
  1. HUMIRA [Suspect]
     Active Substance: ADALIMUMAB
     Indication: CROHN^S DISEASE
     Route: 058
     Dates: start: 20170505

REACTIONS (5)
  - Hypoaesthesia [None]
  - Tooth disorder [None]
  - Neuralgia [None]
  - Bronchitis [None]
  - Sinusitis [None]

NARRATIVE: CASE EVENT DATE: 20170505
